FAERS Safety Report 20585494 (Version 1)
Quarter: 2022Q1

REPORT INFORMATION
  Report Type: Report from Study
  Country: CA (occurrence: CA)
  Receive Date: 20220312
  Receipt Date: 20220312
  Transmission Date: 20220423
  Serious: Yes (Death)
  Sender: FDA-Public Use
  Company Number: CA-HLS-202107867

PATIENT
  Age: 45 Year
  Sex: Male

DRUGS (1)
  1. CLOZARIL [Suspect]
     Active Substance: CLOZAPINE
     Indication: Product used for unknown indication
     Route: 048
     Dates: start: 20210325, end: 20220302

REACTIONS (4)
  - Nasopharyngitis [Unknown]
  - Cough [Unknown]
  - Pyrexia [Unknown]
  - Death [Fatal]

NARRATIVE: CASE EVENT DATE: 20220302
